FAERS Safety Report 9548169 (Version 1)
Quarter: 2013Q2

REPORT INFORMATION
  Report Type: Spontaneous
  Country: US (occurrence: None)
  Receive Date: 20130627
  Receipt Date: 20130627
  Transmission Date: 20140414
  Serious: No
  Sender: FDA-Public Use
  Company Number: 1000043592

PATIENT
  Sex: Female

DRUGS (1)
  1. LINZESS (LINACLOTIDE) (145 MICROGRAM CAPSULES) [Suspect]

REACTIONS (1)
  - Diarrhoea [None]
